FAERS Safety Report 5372750-4 (Version None)
Quarter: 2007Q2

REPORT INFORMATION
  Report Type: 
  Country: None (occurrence: None)
  Receive Date: 20070626
  Receipt Date: 20070615
  Transmission Date: 20071010
  Serious: Yes (Life-Threatening, Other)
  Sender: FDA-Public Use
  Company Number: GXKR2007GB05141

PATIENT
  Age: 64 Year
  Sex: Female

DRUGS (3)
  1. GABAPENTIN [Suspect]
     Dates: start: 20061101
  2. TRIMIPRAMINE MALEATE [Concomitant]
  3. HORMONES (HORMONES) [Concomitant]

REACTIONS (3)
  - ALOPECIA [None]
  - APPENDICITIS PERFORATED [None]
  - SURGERY [None]
